FAERS Safety Report 17319483 (Version 3)
Quarter: 2020Q1

REPORT INFORMATION
  Report Type: Report from Study
  Country: US (occurrence: US)
  Receive Date: 20200124
  Receipt Date: 20200211
  Transmission Date: 20200409
  Serious: Yes (Death)
  Sender: FDA-Public Use
  Company Number: US-ROCHE-2531011

PATIENT
  Sex: Female

DRUGS (2)
  1. ACTEMRA [Suspect]
     Active Substance: TOCILIZUMAB
     Indication: RHEUMATOID LUNG
     Dosage: INFUSE 600 MG INTRAVENOUSLY EVERY 4 WEEK(S)
     Route: 042
  2. ACTEMRA [Suspect]
     Active Substance: TOCILIZUMAB
     Indication: RHEUMATOID ARTHRITIS
     Dosage: INFUSE 600 MG INTRAVENOUSLY EVERY 4 WEEK(S)
     Route: 042

REACTIONS (1)
  - Death [Fatal]
